FAERS Safety Report 20860681 (Version 1)
Quarter: 2022Q2

REPORT INFORMATION
  Report Type: Spontaneous
  Country: US (occurrence: None)
  Receive Date: 20220521
  Receipt Date: 20220521
  Transmission Date: 20220721
  Serious: No
  Sender: FDA-Public Use
  Company Number: None

PATIENT
  Age: 43 Year
  Sex: Male
  Weight: 148.5 kg

DRUGS (19)
  1. PAXLOVID [Suspect]
     Active Substance: NIRMATRELVIR\RITONAVIR
     Indication: COVID-19
     Dosage: OTHER QUANTITY : 30 TABLET(S);?FREQUENCY : TWICE A DAY;?
     Route: 048
  2. GABAPENTIN [Concomitant]
     Active Substance: GABAPENTIN
  3. TIZANIDINE [Concomitant]
  4. BACLOFEN [Concomitant]
     Active Substance: BACLOFEN
  5. DIAZEPAM [Concomitant]
  6. COLACE [Suspect]
     Active Substance: DOCUSATE SODIUM
  7. DOCUSATE [Concomitant]
     Active Substance: DOCUSATE
  8. LISINOPRIL [Concomitant]
     Active Substance: LISINOPRIL
  9. rouastatin [Concomitant]
  10. SENNA [Concomitant]
     Active Substance: SENNA LEAF\SENNOSIDES\SENNOSIDES A AND B
  11. TAMSULOSIN [Concomitant]
  12. DULOXETINE [Concomitant]
     Active Substance: DULOXETINE
  13. METHENAMINE [Concomitant]
  14. Hippurate [Concomitant]
  15. METFORMIN HYDROCHLORIDE [Concomitant]
     Active Substance: METFORMIN HYDROCHLORIDE
  16. MAGNESIUM [Concomitant]
     Active Substance: MAGNESIUM
  17. CALCIUM +D3 [Concomitant]
  18. Vitamin C [Concomitant]
  19. Supe B comp [Concomitant]

REACTIONS (1)
  - Diarrhoea [None]

NARRATIVE: CASE EVENT DATE: 20220521
